FAERS Safety Report 17010958 (Version 1)
Quarter: 2019Q4

REPORT INFORMATION
  Report Type: Spontaneous
  Country: GB (occurrence: GB)
  Receive Date: 20191108
  Receipt Date: 20191108
  Transmission Date: 20200122
  Serious: Yes (Other)
  Sender: FDA-Public Use
  Company Number: GB-BAUSCH-BL-2019-060004

PATIENT
  Age: 67 Year
  Sex: Female
  Weight: 49.89 kg

DRUGS (3)
  1. LATANOPROST. [Suspect]
     Active Substance: LATANOPROST
     Indication: OCULAR HYPERTENSION
     Dosage: PER EYE
     Route: 047
     Dates: start: 20180512, end: 20180802
  2. LOSARTAN POTASSIUM. [Concomitant]
     Active Substance: LOSARTAN POTASSIUM
     Indication: PRODUCT USED FOR UNKNOWN INDICATION
  3. TIMOLOL. [Suspect]
     Active Substance: TIMOLOL
     Indication: OCULAR HYPERTENSION
     Dosage: PER EYE
     Route: 047
     Dates: start: 20180512, end: 20180802

REACTIONS (1)
  - Depression [Unknown]

NARRATIVE: CASE EVENT DATE: 20180614
